FAERS Safety Report 7602702-2 (Version None)
Quarter: 2011Q2

REPORT INFORMATION
  Report Type: 
  Country: None (occurrence: None)
  Receive Date: 20110629
  Receipt Date: 20110623
  Transmission Date: 20111010
  Serious: Yes (Other)
  Sender: FDA-Public Use
  Company Number: B0728446A

PATIENT
  Age: 75 Year
  Sex: Male

DRUGS (3)
  1. DACTINOMYCIN [Concomitant]
  2. MELPHALAN HYDROCHLORIDE [Suspect]
     Indication: MALIGNANT MELANOMA
  3. SORAFENIB (FORMULATION UNKNOWN) (SORAFENIB) [Suspect]
     Dosage: 200 MG/ TWICE PER DAY
     Route: 065

REACTIONS (3)
  - MELANOMA RECURRENT [None]
  - SQUAMOUS CELL CARCINOMA [None]
  - SUBCUTANEOUS NODULE [None]
